FAERS Safety Report 24962725 (Version 6)
Quarter: 2025Q4

REPORT INFORMATION
  Report Type: Report from Study
  Country: EU (occurrence: EU)
  Receive Date: 20250212
  Receipt Date: 20251010
  Transmission Date: 20260118
  Serious: Yes (Hospitalization)
  Sender: ABBVIE
  Company Number: EU-ABBVIE-6126101

PATIENT
  Age: 70 Year
  Sex: Female

DRUGS (5)
  1. FOSCARBIDOPA\FOSLEVODOPA [Suspect]
     Active Substance: FOSCARBIDOPA\FOSLEVODOPA
     Indication: Parkinson^s disease
     Dosage: LAST ADMIN DATE: 2025?DOSAGE: CR: 0.15 ML/H; CRN: 0.15 ML/H; CRH: 0.17 ML/H; ED: 0.10 ML
     Route: 058
     Dates: start: 20250114
  2. FOSCARBIDOPA\FOSLEVODOPA [Suspect]
     Active Substance: FOSCARBIDOPA\FOSLEVODOPA
     Dosage: ADJUSTED DOSAGE: CR: 0.17ML/H; CRN: 0.17ML/H; CRH: 0.19 ML/H; ED: 0.10 ML.?FIRST AND LAST ADMIN D...
     Route: 058
  3. FOSCARBIDOPA\FOSLEVODOPA [Suspect]
     Active Substance: FOSCARBIDOPA\FOSLEVODOPA
     Dosage: CRN: 0,19 ML/H; CR: 0,21 ML/H; CRH: 0,23 ML/H; ED: 0,10 ML?FIRST AND LAST ADMIN DATE: 2025?DOSE I...
     Route: 058
  4. FOSCARBIDOPA\FOSLEVODOPA [Suspect]
     Active Substance: FOSCARBIDOPA\FOSLEVODOPA
     Dosage: (SD: 0ML), CRN: 0.18ML/H, CR: 0.19ML/H, CRH:0.21 ML/H, ED: 0.1 ML?FIRST AND LAST ADMIN DATE: 2025
     Route: 058
  5. FOSCARBIDOPA\FOSLEVODOPA [Suspect]
     Active Substance: FOSCARBIDOPA\FOSLEVODOPA
     Dosage: SD: 0 ML; CRN: 0.18 ML/H; CR: 0.20 ML/H; CRH: 0.21 ML/H; ED: 0.1 ML ?FIRST ADMIN DATE: 2025
     Route: 058

REACTIONS (13)
  - Depression [Not Recovered/Not Resolved]
  - Hyperkinesia [Not Recovered/Not Resolved]
  - Movement disorder [Not Recovered/Not Resolved]
  - Hypokinesia [Not Recovered/Not Resolved]
  - Immobile [Unknown]
  - Hyperkinesia [Recovered/Resolved]
  - Fall [Recovered/Resolved]
  - Haemarthrosis [Not Recovered/Not Resolved]
  - Rib fracture [Unknown]
  - Nasopharyngitis [Recovered/Resolved]
  - Pain [Unknown]
  - On and off phenomenon [Not Recovered/Not Resolved]
  - Infusion site reaction [Unknown]

NARRATIVE: CASE EVENT DATE: 20250101
